FAERS Safety Report 8560234-1 (Version None)
Quarter: 2012Q3

REPORT INFORMATION
  Report Type: 
  Country: None (occurrence: None)
  Receive Date: 20120802
  Receipt Date: 20120726
  Transmission Date: 20120928
  Serious: Yes (Hospitalization, Disabling)
  Sender: FDA-Public Use
  Company Number: FR-009507513-2012SP020895

PATIENT

DRUGS (5)
  1. ISENTRESS [Concomitant]
     Indication: HIV INFECTION
     Dosage: 400 MG, BID
     Dates: start: 20080818
  2. BOCEPREVIR [Suspect]
     Indication: HEPATITIS C
     Dosage: 800 MG, TID
     Dates: start: 20110927, end: 20120726
  3. TRUVADA [Concomitant]
     Indication: HIV INFECTION
     Dosage: 1 DF, QD
     Dates: start: 20090730
  4. RIBAVIRIN [Suspect]
     Indication: HEPATITIS C
     Dosage: 800 MG, QD
     Dates: start: 20110825, end: 20120726
  5. PEGINTERFERON ALFA-2B [Suspect]
     Indication: HEPATITIS C
     Dosage: 80 ?G, QW
     Dates: start: 20110825, end: 20120726

REACTIONS (8)
  - GENERAL PHYSICAL HEALTH DETERIORATION [None]
  - MALNUTRITION [None]
  - AUTONOMIC NERVOUS SYSTEM IMBALANCE [None]
  - HYPOTENSION [None]
  - DECREASED APPETITE [None]
  - PROSTATITIS [None]
  - ASTHENIA [None]
  - ANAEMIA [None]
